FAERS Safety Report 16422025 (Version 1)
Quarter: 2019Q2

REPORT INFORMATION
  Report Type: Spontaneous
  Country: FR (occurrence: FR)
  Receive Date: 20190612
  Receipt Date: 20190612
  Transmission Date: 20190711
  Serious: Yes (Hospitalization, Other)
  Sender: FDA-Public Use
  Company Number: FR-VIFOR (INTERNATIONAL) INC.-VIT-2019-05684

PATIENT
  Age: 36 Year
  Sex: Female

DRUGS (8)
  1. TARDYFERON B9 [Concomitant]
     Active Substance: FERROUS SULFATE\FOLIC ACID\GASTRIC MUCIN
     Route: 048
  2. FOLIC ACID. [Concomitant]
     Active Substance: FOLIC ACID
     Route: 048
  3. CALTRATE +D3 [Concomitant]
     Dosage: 500/400
     Route: 048
  4. IRON [Concomitant]
     Active Substance: IRON
     Route: 042
  5. KARDEGIC [Concomitant]
     Active Substance: ASPIRIN DL-LYSINE
     Route: 048
     Dates: start: 20140425
  6. MIRCERA [Suspect]
     Active Substance: METHOXY POLYETHYLENE GLYCOL-EPOETIN BETA
     Indication: NEPHROGENIC ANAEMIA
     Route: 065
  7. ALFACALCIDOL [Concomitant]
     Active Substance: ALFACALCIDOL
     Route: 048
  8. HEPARIN [Concomitant]
     Active Substance: HEPARIN SODIUM

REACTIONS (6)
  - Pulmonary oedema [Unknown]
  - Polyhydramnios [Unknown]
  - Premature delivery [Unknown]
  - Shortened cervix [Unknown]
  - Maternal exposure during pregnancy [Unknown]
  - Respiratory distress [Unknown]

NARRATIVE: CASE EVENT DATE: 2014
